FAERS Safety Report 8523708-5 (Version None)
Quarter: 2012Q3

REPORT INFORMATION
  Report Type: 
  Country: None (occurrence: None)
  Receive Date: 20120720
  Receipt Date: 20120514
  Transmission Date: 20120928
  Serious: Yes (Other)
  Sender: FDA-Public Use
  Company Number: DE-SANOFI-AVENTIS-2012SA050818

PATIENT
  Age: 49 Year
  Sex: Male
  Weight: 78 kg

DRUGS (2)
  1. METOPROLOL SUCCINATE [Concomitant]
     Indication: ATRIAL FIBRILLATION
     Route: 048
     Dates: start: 20120301
  2. MULTAQ [Suspect]
     Route: 048
     Dates: start: 20120305, end: 20120506

REACTIONS (2)
  - ELECTROCARDIOGRAM ABNORMAL [None]
  - ATRIAL FIBRILLATION [None]
